FAERS Safety Report 4283140-X (Version None)
Quarter: 2004Q1

REPORT INFORMATION
  Report Type: 
  Country: None (occurrence: None)
  Receive Date: 20040121
  Receipt Date: 20040105
  Transmission Date: 20041129
  Serious: Yes (Hospitalization)
  Sender: FDA-Public Use
  Company Number: 234404

PATIENT
  Age: 62 Year
  Sex: Male
  Weight: 67 kg

DRUGS (17)
  1. NOVOSEVEN [Suspect]
     Indication: HAEMATOMA
     Dosage: SEE IMAGE
     Route: 042
     Dates: start: 20031107, end: 20031108
  2. NOVOSEVEN [Suspect]
     Indication: HAEMATOMA
     Dosage: SEE IMAGE
     Route: 042
     Dates: start: 20031111, end: 20031114
  3. NOVOSEVEN [Suspect]
     Dates: start: 20031107, end: 20031108
  4. NOVOSEVEN [Suspect]
     Dates: start: 20031107, end: 20031108
  5. NOVOSEVEN [Suspect]
     Dates: start: 20031109, end: 20031110
  6. NOVOSEVEN [Suspect]
     Dates: start: 20031109, end: 20031110
  7. NOVOSEVEN [Suspect]
     Dates: start: 20031109, end: 20031110
  8. NOVOSEVEN [Suspect]
     Dates: start: 20031105, end: 20031105
  9. NOVOSEVEN [Suspect]
     Dates: start: 20031105, end: 20031105
  10. NOVOSEVEN [Suspect]
     Dates: start: 20031105, end: 20031105
  11. NOVOSEVEN [Suspect]
     Dates: start: 20031106, end: 20031107
  12. NOVOSEVEN [Suspect]
     Dates: start: 20031106, end: 20031107
  13. NOVOSEVEN [Suspect]
     Dates: start: 20031106, end: 20031107
  14. AMITRIPTYLINE HYDROCHLORIDE [Concomitant]
  15. AUGMENTIN [Concomitant]
  16. DEXAMETHASONE SODIUM PHOSPHATE [Concomitant]
  17. RODOGYL (METRONIDAZOLE, SPIRAMYCIN) [Concomitant]

REACTIONS (6)
  - CONDITION AGGRAVATED [None]
  - DEEP VEIN THROMBOSIS [None]
  - HAEMATOMA [None]
  - PHLEBITIS [None]
  - TOOTH ABSCESS [None]
  - VEIN PAIN [None]
